FAERS Safety Report 6910509-4 (Version None)
Quarter: 2010Q3

REPORT INFORMATION
  Report Type: 
  Country: None (occurrence: None)
  Receive Date: 20100806
  Receipt Date: 20100802
  Transmission Date: 20110219
  Serious: Yes (Death, Hospitalization, Other)
  Sender: FDA-Public Use
  Company Number: PHHY2010BR50719

PATIENT
  Sex: Male

DRUGS (7)
  1. DIOVAN [Suspect]
     Indication: HYPERTENSION
     Dosage: 80 MG, QD
     Route: 048
     Dates: start: 20080101
  2. LIPITOR [Concomitant]
     Indication: CARDIAC DISORDER
     Dosage: ONE TABLET (40 MG) A DAY
     Route: 048
  3. ALDACTONE [Concomitant]
     Indication: CARDIAC DISORDER
     Dosage: ONE TABLET (25 MG) A DAY
     Route: 048
  4. CARVEDILOL [Concomitant]
     Indication: CARDIAC DISORDER
     Dosage: ONE TABLET (12.5) (UNKNOWN UNITS) A DAY
     Route: 048
  5. FRONTAL [Concomitant]
     Indication: PSYCHIATRIC SYMPTOM
     Dosage: ONE TABLET (0.5) (UNKNOWN UNITS) A DAY
     Route: 048
  6. ASPIRIN [Concomitant]
     Indication: CARDIAC DISORDER
     Dosage: ONE TABLET A DAY
     Route: 048
  7. OMEPRAZOLE [Concomitant]
     Indication: GASTRIC ULCER
     Dosage: ONE TABLET (40 MG) A DAY
     Route: 048

REACTIONS (10)
  - CARDIAC INFECTION [None]
  - CARDIOMYOPATHY [None]
  - CONDITION AGGRAVATED [None]
  - DYSPNOEA [None]
  - INFLUENZA [None]
  - MULTI-ORGAN FAILURE [None]
  - PNEUMONIA [None]
  - RENAL FAILURE [None]
  - RENAL IMPAIRMENT [None]
  - SEPTIC SHOCK [None]
